FAERS Safety Report 5835263-9 (Version None)
Quarter: 2008Q3

REPORT INFORMATION
  Report Type: 
  Country: None (occurrence: None)
  Receive Date: 20080806
  Receipt Date: 20080728
  Transmission Date: 20090109
  Serious: Yes (Death)
  Sender: FDA-Public Use
  Company Number: NO-TEVA-175072ISR

PATIENT
  Sex: Female

DRUGS (3)
  1. FOLINIC ACID [Suspect]
     Indication: BRAIN NEOPLASM MALIGNANT
  2. IRINOTECAN HCL [Suspect]
     Indication: BRAIN NEOPLASM MALIGNANT
  3. FLUOROURACIL [Suspect]
     Indication: BRAIN NEOPLASM MALIGNANT

REACTIONS (4)
  - DEPRESSED LEVEL OF CONSCIOUSNESS [None]
  - FACIAL PARESIS [None]
  - HALLUCINATION [None]
  - HYDRONEPHROSIS [None]
